FAERS Safety Report 12444304 (Version 1)
Quarter: 2016Q2

REPORT INFORMATION
  Report Type: Spontaneous
  Country: US (occurrence: US)
  Receive Date: 20160607
  Receipt Date: 20160607
  Transmission Date: 20160815
  Serious: No
  Sender: FDA-Public Use
  Company Number: US-SA-2016SA066496

PATIENT
  Age: 69 Year
  Sex: Female
  Weight: 114.3 kg

DRUGS (16)
  1. NOVOLOG [Concomitant]
     Active Substance: INSULIN ASPART
     Dosage: 14-18 UNITS
  2. SPIRONOLACTONE. [Concomitant]
     Active Substance: SPIRONOLACTONE
     Indication: ALOPECIA
  3. CLONIDINE HYDROCHLORIDE. [Concomitant]
     Active Substance: CLONIDINE HYDROCHLORIDE
     Dosage: 0.2 MG
  4. COREG [Concomitant]
     Active Substance: CARVEDILOL
     Dosage: 25MG
  5. FISH OIL [Concomitant]
     Active Substance: FISH OIL
     Dosage: 1200MG/360MG OMEGA 3
  6. ASPIRIN ^BAYER^ [Concomitant]
     Active Substance: ASPIRIN
     Dosage: 81 MG
  7. VITAMIN D [Concomitant]
     Active Substance: CHOLECALCIFEROL
     Dosage: 50,000 UNITS 1 PER WEEK (SUNDAY)
  8. SOLOSTAR [Suspect]
     Active Substance: DEVICE
     Indication: TYPE 2 DIABETES MELLITUS
     Dates: start: 201509
  9. SIMVASTATIN. [Concomitant]
     Active Substance: SIMVASTATIN
  10. VITAMIN B12 [Concomitant]
     Active Substance: CYANOCOBALAMIN
  11. IRON [Concomitant]
     Active Substance: IRON
     Dosage: 65MG
  12. TOUJEO [Suspect]
     Active Substance: INSULIN GLARGINE
     Indication: TYPE 2 DIABETES MELLITUS
     Dosage: DOSE:58 UNIT(S)
     Route: 065
     Dates: start: 201509
  13. LEVOTHYROXINE. [Concomitant]
     Active Substance: LEVOTHYROXINE
  14. BUMEX [Concomitant]
     Active Substance: BUMETANIDE
     Dosage: AS NEEDED FOR FLUID
  15. METFORMIN [Concomitant]
     Active Substance: METFORMIN HYDROCHLORIDE
     Dosage: BREAKFAST/DINNER
  16. FELODIPINE. [Concomitant]
     Active Substance: FELODIPINE

REACTIONS (2)
  - Blood glucose increased [Unknown]
  - Device issue [Unknown]

NARRATIVE: CASE EVENT DATE: 20160329
